FAERS Safety Report 21102015 (Version 2)
Quarter: 2022Q3

REPORT INFORMATION
  Report Type: Spontaneous
  Country: SA (occurrence: SA)
  Receive Date: 20220719
  Receipt Date: 20220719
  Transmission Date: 20221027
  Serious: Yes (Death, Other)
  Sender: FDA-Public Use
  Company Number: SA-PFIZER INC-PV202200021356

PATIENT
  Age: 52 Year
  Sex: Male

DRUGS (4)
  1. DOXYCYCLINE [Suspect]
     Active Substance: DOXYCYCLINE
     Indication: Infective aneurysm
     Dosage: UNK
     Route: 048
  2. DOXYCYCLINE [Suspect]
     Active Substance: DOXYCYCLINE
     Indication: Brucellosis
  3. GENTAMICIN [Suspect]
     Active Substance: GENTAMICIN
     Indication: Infective aneurysm
     Dosage: UNK
     Route: 042
  4. RIFAMPIN [Suspect]
     Active Substance: RIFAMPIN
     Indication: Infective aneurysm
     Dosage: UNK
     Route: 042

REACTIONS (1)
  - Hypovolaemic shock [Fatal]
